FAERS Safety Report 6161001-9 (Version None)
Quarter: 2009Q2

REPORT INFORMATION
  Report Type: 
  Country: None (occurrence: None)
  Receive Date: 20090420
  Receipt Date: 20090410
  Transmission Date: 20091009
  Serious: Yes (Hospitalization)
  Sender: FDA-Public Use
  Company Number: US-PFIZER INC-2007108882

PATIENT
  Sex: Female
  Weight: 58.06 kg

DRUGS (5)
  1. CELECOXIB [Suspect]
     Indication: OSTEOARTHRITIS
     Route: 048
     Dates: start: 20070926, end: 20071227
  2. ALBUTEROL [Concomitant]
     Route: 048
     Dates: start: 19991119
  3. ADVAIR HFA [Concomitant]
     Route: 048
     Dates: start: 20010613
  4. AMBIEN [Concomitant]
     Route: 048
     Dates: start: 20020520
  5. SPIRIVA [Concomitant]
     Route: 048
     Dates: start: 20060208

REACTIONS (1)
  - CHRONIC OBSTRUCTIVE PULMONARY DISEASE [None]
